FAERS Safety Report 4414721-8 (Version None)
Quarter: 2004Q3

REPORT INFORMATION
  Report Type: 
  Country: None (occurrence: None)
  Receive Date: 20040804
  Receipt Date: 20030721
  Transmission Date: 20050211
  Serious: No
  Sender: FDA-Public Use
  Company Number: US-BRISTOL-MYERS SQUIBB COMPANY-12331260

PATIENT
  Age: 53 Year
  Sex: Male
  Weight: 125 kg

DRUGS (1)
  1. GLUCOVANCE [Suspect]
     Indication: DIABETES MELLITUS
     Route: 048
     Dates: start: 20030718

REACTIONS (2)
  - FREQUENT BOWEL MOVEMENTS [None]
  - STOMACH DISCOMFORT [None]
